FAERS Safety Report 8041934-9 (Version None)
Quarter: 2011Q4

REPORT INFORMATION
  Report Type: 
  Country: None (occurrence: None)
  Receive Date: 20111205
  Receipt Date: 20110817
  Transmission Date: 20120403
  Serious: No
  Sender: FDA-Public Use
  Company Number: 163-22393-11082042

PATIENT
  Age: 51 Year
  Sex: Female

DRUGS (3)
  1. CORTISOL (HYDROCORTISONE) (UNKNOWN) [Concomitant]
  2. BLEOMYCIN SULFATE [Concomitant]
  3. ISTODAX [Suspect]
     Indication: T-CELL LYMPHOMA
     Dosage: IV
     Route: 042

REACTIONS (4)
  - T-CELL LYMPHOMA [None]
  - DISEASE PROGRESSION [None]
  - RASH [None]
  - RADIATION INJURY [None]
